FAERS Safety Report 12202272 (Version 1)
Quarter: 2016Q1

REPORT INFORMATION
  Report Type: Report from Study
  Country: US (occurrence: US)
  Receive Date: 20160323
  Receipt Date: 20160323
  Transmission Date: 20160526
  Serious: Yes (Other)
  Sender: FDA-Public Use
  Company Number: US-AMGEN-USASL2016033018

PATIENT
  Age: 68 Year
  Sex: Female

DRUGS (6)
  1. EXALGO [Concomitant]
     Active Substance: HYDROMORPHONE HYDROCHLORIDE
     Indication: FIBROMYALGIA
     Dosage: UNK, BID
  2. EXALGO [Concomitant]
     Active Substance: HYDROMORPHONE HYDROCHLORIDE
     Dosage: UNK, QD
  3. IBUPROFEN                          /00109205/ [Concomitant]
     Active Substance: IBUPROFEN
     Dosage: UNK
  4. ENBREL [Suspect]
     Active Substance: ETANERCEPT
     Indication: PSORIATIC ARTHROPATHY
     Dosage: 25 MG, 2 TIMES/WK
     Route: 065
  5. ENBREL [Suspect]
     Active Substance: ETANERCEPT
     Indication: PSORIASIS
  6. CELEBREX [Concomitant]
     Active Substance: CELECOXIB

REACTIONS (5)
  - Psoriasis [Unknown]
  - Psoriatic arthropathy [Unknown]
  - Device issue [Unknown]
  - Injection site pain [Unknown]
  - Endometrial cancer [Unknown]

NARRATIVE: CASE EVENT DATE: 2005
